FAERS Safety Report 14933653 (Version 1)
Quarter: 2018Q2

REPORT INFORMATION
  Report Type: Spontaneous
  Country: GB (occurrence: GB)
  Receive Date: 20180524
  Receipt Date: 20180524
  Transmission Date: 20180711
  Serious: Yes (Other)
  Sender: FDA-Public Use
  Company Number: GB-PFIZER INC-2018204105

PATIENT
  Age: 55 Year
  Sex: Female
  Weight: 63 kg

DRUGS (8)
  1. VENLAFAXINE [Concomitant]
     Active Substance: VENLAFAXINE HYDROCHLORIDE
     Indication: FLUSHING
     Dosage: ONE TABLET A DAY
  2. VENLAFAXINE [Concomitant]
     Active Substance: VENLAFAXINE HYDROCHLORIDE
     Dosage: TWICE DAILY
     Dates: start: 20180326
  3. PREGABALIN. [Suspect]
     Active Substance: PREGABALIN
     Dosage: UNK
     Dates: start: 20180405
  4. CLONIDINE. [Concomitant]
     Active Substance: CLONIDINE
     Dosage: 6 DF, 1X/DAY
     Dates: start: 20180103, end: 20180222
  5. BETAMETHASONE VALERATE. [Concomitant]
     Active Substance: BETAMETHASONE VALERATE
     Dosage: 2 DF, 1X/DAY; APPLY THINLY FOR UP TO 5 DAYS
     Dates: start: 20180115, end: 20180212
  6. PENTASA [Concomitant]
     Active Substance: MESALAMINE
     Dosage: 2 DF, 1X/DAY
     Dates: start: 20180103
  7. CITALOPRAM [Concomitant]
     Active Substance: CITALOPRAM HYDROBROMIDE
     Indication: FLUSHING
     Dosage: ONE OR TWO  TABLET IN THE MORNING
     Dates: start: 20180208, end: 20180308
  8. CANDESARTAN. [Concomitant]
     Active Substance: CANDESARTAN
     Dosage: 1 DF, 1X/DAY
     Dates: start: 20180103

REACTIONS (2)
  - Mouth ulceration [Recovering/Resolving]
  - Lip swelling [Recovering/Resolving]

NARRATIVE: CASE EVENT DATE: 20180405
